FAERS Safety Report 6788528-0 (Version None)
Quarter: 2010Q2

REPORT INFORMATION
  Report Type: 
  Country: None (occurrence: None)
  Receive Date: 20100621
  Receipt Date: 20100607
  Transmission Date: 20101027
  Serious: Yes (Other)
  Sender: FDA-Public Use
  Company Number: ACO_00767_2010

PATIENT
  Sex: Female
  Weight: 68.0396 kg

DRUGS (2)
  1. AMPYRA [Suspect]
     Indication: MULTIPLE SCLEROSIS
     Dosage: 10 MG BID ORAL, 10 MG, ONCE DAILY FOR 5 DAYS, THEN QUIT ORAL
     Route: 048
     Dates: start: 20100423
  2. REBIF [Concomitant]

REACTIONS (1)
  - MONOPLEGIA [None]
